FAERS Safety Report 19472159 (Version 3)
Quarter: 2021Q3

REPORT INFORMATION
  Report Type: Report from Study
  Country: CO (occurrence: CO)
  Receive Date: 20210629
  Receipt Date: 20210712
  Transmission Date: 20211014
  Serious: Yes (Hospitalization)
  Sender: FDA-Public Use
  Company Number: NVSC2021CO121873

PATIENT
  Age: 58 Year
  Sex: Female
  Weight: 45 kg

DRUGS (7)
  1. FEMARA [Suspect]
     Active Substance: LETROZOLE
     Indication: BREAST CANCER
     Dosage: 2.5 MG, QD
     Route: 048
     Dates: start: 201901
  2. KISQALI [Suspect]
     Active Substance: RIBOCICLIB
     Dosage: 400 MG, QD
     Route: 048
  3. ENALAPRIL [Concomitant]
     Active Substance: ENALAPRIL
     Indication: HYPERTENSION
     Dosage: UNK, QD (5 YEARS AGO)
     Route: 048
  4. CALTRATE [Concomitant]
     Active Substance: CALCIUM CARBONATE
     Indication: BONE DECALCIFICATION
     Dosage: UNK, QD (2 YEARS AGO)
     Route: 048
  5. KISQALI [Suspect]
     Active Substance: RIBOCICLIB
     Dosage: UNK UNK, QD
     Route: 048
  6. KISQALI [Suspect]
     Active Substance: RIBOCICLIB
     Indication: BREAST CANCER METASTATIC
     Dosage: 600 MG, QD
     Route: 048
     Dates: start: 201901
  7. FEMARA [Suspect]
     Active Substance: LETROZOLE
     Dosage: UNK UNK, QD
     Route: 048

REACTIONS (5)
  - Inflammation [Unknown]
  - Thrombosis [Unknown]
  - Gait disturbance [Unknown]
  - Radioisotope scan abnormal [Unknown]
  - Obstruction [Unknown]

NARRATIVE: CASE EVENT DATE: 201906
